FAERS Safety Report 4979909-6 (Version None)
Quarter: 2006Q2

REPORT INFORMATION
  Report Type: 
  Country: None (occurrence: None)
  Receive Date: 20060421
  Receipt Date: 20060413
  Transmission Date: 20061013
  Serious: Yes (Hospitalization)
  Sender: FDA-Public Use
  Company Number: US-MERCK-0604USA02215

PATIENT
  Age: 63 Year
  Sex: Female

DRUGS (4)
  1. FOSAMAX [Suspect]
     Indication: OSTEOPOROSIS
     Route: 048
     Dates: start: 19990101, end: 20041006
  2. FOSAMAX [Suspect]
     Route: 048
     Dates: start: 19960101, end: 19990101
  3. VITAMINS (UNSPECIFIED) [Concomitant]
     Route: 065
  4. NUTRITIONAL SUPPLEMENTS [Concomitant]
     Route: 065

REACTIONS (3)
  - GASTRIC DISORDER [None]
  - GASTROOESOPHAGEAL REFLUX DISEASE [None]
  - OESOPHAGEAL DISCOMFORT [None]
